FAERS Safety Report 20413039 (Version 11)
Quarter: 2022Q2

REPORT INFORMATION
  Report Type: Report from Study
  Country: IL (occurrence: IL)
  Receive Date: 20220201
  Receipt Date: 20220402
  Transmission Date: 20220720
  Serious: Yes (Hospitalization, Other)
  Sender: FDA-Public Use
  Company Number: IL-ABBVIE-21K-082-4213224-00

PATIENT
  Age: 72 Year
  Sex: Male

DRUGS (5)
  1. CARBIDOPA\LEVODOPA [Suspect]
     Active Substance: CARBIDOPA\LEVODOPA
     Indication: Parkinson^s disease
     Route: 050
     Dates: start: 20160924
  2. CARBIDOPA\LEVODOPA [Suspect]
     Active Substance: CARBIDOPA\LEVODOPA
     Dosage: CURRENT: MORNING 5.0 ML, CONTINUOUS DAY 3.0 ML/HOUR, EXTRA 2.3 ML THERAPY DURATION 16 H
     Route: 050
  3. CARBIDOPA\LEVODOPA [Suspect]
     Active Substance: CARBIDOPA\LEVODOPA
     Dosage: CURRENT: MORNING 5.5 ML, CONTINUOUS DAY 3.0 ML/HOUR, EXTRA 2.3 ML THERAPY DURATION 16 H
     Route: 050
  4. CARBIDOPA\LEVODOPA [Suspect]
     Active Substance: CARBIDOPA\LEVODOPA
     Dosage: MORNING 5.5 ML, CONTINUOUS DAY 3.2 ML/HOUR, EXTRA 2.3 ML THERAPY DURATION 16 H
     Route: 050
     Dates: end: 20220217
  5. CARBIDOPA\LEVODOPA [Suspect]
     Active Substance: CARBIDOPA\LEVODOPA
     Dosage: MD (ML) 6.0, CD (ML/H) 3.2 , EXTRA DOSAGE (ML) 2.3?20 MG/ML 5 MG/ML
     Route: 050
     Dates: start: 20220217, end: 2022

REACTIONS (23)
  - Gastric infection [Unknown]
  - Cellulite [Recovered/Resolved]
  - Cellulitis [Unknown]
  - Gastric perforation [Unknown]
  - Pyrexia [Unknown]
  - Abdominal pain [Unknown]
  - Infection [Unknown]
  - Infrequent bowel movements [Unknown]
  - Coronavirus infection [Unknown]
  - COVID-19 [Unknown]
  - Medical device site infection [Unknown]
  - Device placement issue [Unknown]
  - Balance disorder [Unknown]
  - Pneumonia aspiration [Unknown]
  - Constipation [Unknown]
  - On and off phenomenon [Unknown]
  - Stoma site pain [Not Recovered/Not Resolved]
  - Stoma site erythema [Unknown]
  - Abdominal distension [Unknown]
  - Diarrhoea [Unknown]
  - Constipation [Unknown]
  - Therapeutic product effect incomplete [Unknown]
  - Unevaluable event [Unknown]

NARRATIVE: CASE EVENT DATE: 20210801
